FAERS Safety Report 4562712-9 (Version None)
Quarter: 2005Q1

REPORT INFORMATION
  Report Type: 
  Country: None (occurrence: None)
  Receive Date: 20050124
  Receipt Date: 20050112
  Transmission Date: 20050727
  Serious: Yes (Hospitalization)
  Sender: FDA-Public Use
  Company Number: GB-SHR-03-008329

PATIENT
  Age: 65 Year
  Sex: Female
  Weight: 78 kg

DRUGS (2)
  1. E2 4.4+LNG2.75 (SH P 604 EM) (ESTRADIOL HEMIHYDRATE, LEVONORGESTREL) P [Suspect]
     Indication: HORMONE REPLACEMENT THERAPY
     Dosage: 45 MCG E2/D + 30MCG LNG/D, TRANSDERMAL
     Route: 062
     Dates: start: 20010605, end: 20030520
  2. COD-LIVER OIL (COD-LIVER OIL) [Concomitant]

REACTIONS (5)
  - CELLULITIS [None]
  - GALLBLADDER CANCER [None]
  - METASTASES TO LIVER [None]
  - NON-CARDIAC CHEST PAIN [None]
  - PHLEBITIS [None]
